FAERS Safety Report 23190642 (Version 2)
Quarter: 2023Q4

REPORT INFORMATION
  Report Type: Report from Study
  Country: IT (occurrence: IT)
  Receive Date: 20231116
  Receipt Date: 20231127
  Transmission Date: 20240109
  Serious: Yes (Hospitalization, Other)
  Sender: FDA-Public Use
  Company Number: IT-ROCHE-2194937

PATIENT
  Age: 55 Year
  Sex: Female
  Weight: 70 kg

DRUGS (34)
  1. DOXORUBICIN [Suspect]
     Active Substance: DOXORUBICIN
     Indication: HER2 positive breast cancer
     Dosage: 60 MG/KG, EVERY 3 WEEK, MOST RECENT DOSE PRIOR TO AE 20/MAY/2022
     Route: 042
     Dates: start: 20220315
  2. CYCLOPHOSPHAMIDE [Suspect]
     Active Substance: CYCLOPHOSPHAMIDE
     Indication: HER2 positive breast cancer
     Dosage: 600 MG/KG, EVERY 3 WEEKS, MOST RECENT DOSE PRIOR TO AE 20/MAY/2022
     Route: 042
     Dates: start: 20220315
  3. PERJETA [Suspect]
     Active Substance: PERTUZUMAB
     Indication: HER2 positive breast cancer
     Dosage: 840 MG, EVERY 3 WEEKS
     Route: 042
     Dates: start: 20171118, end: 20171118
  4. PERJETA [Suspect]
     Active Substance: PERTUZUMAB
     Dosage: 420 MG, EVERY 3 WEEKS
     Route: 042
     Dates: start: 20171209, end: 20200918
  5. RIBOCICLIB [Suspect]
     Active Substance: RIBOCICLIB
     Indication: HER2 positive breast cancer
     Dosage: 200 MG, EVERY 0.33 DAY, MOST RECENT DOSE PRIOR TO AE 14/JAN/2022
     Route: 048
     Dates: start: 20210618
  6. PARAPLATIN [Suspect]
     Active Substance: CARBOPLATIN
     Indication: HER2 positive breast cancer
     Dosage: EVERY 3 WEEKS, MOST RECENT DOSE PRIOR TO THE EVENT: 29/JUL/2022 4AUC
     Route: 042
     Dates: start: 20220527
  7. PARAPLATIN [Suspect]
     Active Substance: CARBOPLATIN
     Dosage: EVERY 3 WEEKS, 6AUC
     Route: 042
     Dates: start: 20220204, end: 20220225
  8. GEMZAR [Suspect]
     Active Substance: GEMCITABINE HYDROCHLORIDE
     Indication: HER2 positive breast cancer
     Dosage: 800 MG/KG, EVERY 3 WEEKS, MOST RECENT DOSE PRIOR TO 29/JUL/2022
     Route: 042
     Dates: start: 20220527
  9. PEMBROLIZUMAB [Suspect]
     Active Substance: PEMBROLIZUMAB
     Indication: HER2 positive breast cancer
     Dosage: 200 MG, EVERY 3 WEEKS, MOST RECENT DOSE PRIOR TO AE 25/FEB/2022
     Route: 042
     Dates: start: 20220204
  10. HERCEPTIN [Suspect]
     Active Substance: TRASTUZUMAB
     Indication: HER2 positive breast cancer
     Dosage: 8 MG/KG, EVERY 3 WEEKS, MOST RECENT DOSE PRIOR TO THE EVENT: 17/JUN/2022
     Route: 042
     Dates: start: 20171118, end: 20171118
  11. HERCEPTIN [Suspect]
     Active Substance: TRASTUZUMAB
     Dosage: 420 MG, EVERY 3 WEEKS
     Route: 042
     Dates: start: 20220527, end: 20220729
  12. HERCEPTIN [Suspect]
     Active Substance: TRASTUZUMAB
     Dosage: 6 MG/KG, EVERY 3 WEEK
     Route: 042
     Dates: start: 20171209, end: 20210521
  13. TAXOTERE [Suspect]
     Active Substance: DOCETAXEL
     Indication: HER2 positive breast cancer
     Dosage: 75 MG/M2, EVERY 3 WEEKS, MOST RECENT DOSE WAS RECIVED ON 14/APR/2018
     Route: 042
     Dates: start: 20171118
  14. AROMASIN [Suspect]
     Active Substance: EXEMESTANE
     Indication: HER2 positive breast cancer
     Dosage: 25 MG, ONCE DAILY, MOST RECENT DOSE PRIOR TO AE 09/OCT/2020
     Route: 048
     Dates: start: 20180713
  15. XELODA [Suspect]
     Active Substance: CAPECITABINE
     Indication: HER2 positive breast cancer
     Dosage: 500 MG, MOST RECENT DOSE PRIOR TO THE EVENT: 05/AUG/2022
     Route: 048
     Dates: start: 20220805, end: 20220824
  16. FASLODEX [Suspect]
     Active Substance: FULVESTRANT
     Indication: HER2 positive breast cancer
     Dosage: 500 MG, EVERY 3 WEEKS, MOST RECENT DOSE PRIOR TO AE 31/DEC/2021
     Route: 030
     Dates: start: 20210521
  17. TALAZOPARIB [Suspect]
     Active Substance: TALAZOPARIB
     Indication: HER2 positive breast cancer
     Dosage: 1 MG, QD
     Route: 048
     Dates: start: 20201106, end: 20210423
  18. DENOSUMAB [Concomitant]
     Active Substance: DENOSUMAB
     Dosage: UNK, ONGOING = CHECKED
     Route: 065
     Dates: start: 20190315
  19. LOPERAMIDE [Concomitant]
     Active Substance: LOPERAMIDE
     Indication: Diarrhoea
     Dosage: UNK, ONGOING = CHECKED
     Route: 065
     Dates: start: 20171119, end: 20180302
  20. Decapeptyl [Concomitant]
     Dosage: UNK, ONGOING=CHECKED
     Route: 065
     Dates: start: 20180713
  21. LORAZEPAM [Concomitant]
     Active Substance: LORAZEPAM
     Dosage: UNK
     Route: 065
  22. LEVOSULPIRIDE [Concomitant]
     Active Substance: LEVOSULPIRIDE
     Dosage: UNK
     Route: 065
     Dates: start: 20171118, end: 20180414
  23. LANSOPRAZOLE [Concomitant]
     Active Substance: LANSOPRAZOLE
     Dosage: UNK
     Route: 065
     Dates: start: 20171208, end: 20180413
  24. LANSOPRAZOLE [Concomitant]
     Active Substance: LANSOPRAZOLE
     Dosage: UNK
     Route: 065
     Dates: start: 20171118, end: 20180414
  25. CHLORPHENIRAMINE MALEATE [Concomitant]
     Active Substance: CHLORPHENIRAMINE MALEATE
     Dosage: UNK
     Route: 065
     Dates: start: 20171118
  26. VEA LIPOGEL [Concomitant]
     Dosage: UNK, ONGOING = CHECKED
     Route: 065
     Dates: start: 20190215
  27. Ecoval [Concomitant]
     Dosage: UNK, ONGOING CHECKED
     Route: 065
     Dates: start: 20200424
  28. CETIRIZINE HYDROCHLORIDE [Concomitant]
     Active Substance: CETIRIZINE HYDROCHLORIDE
     Dosage: UNK, ONGOING = CHECKED CHECKED
     Route: 065
     Dates: start: 20190531, end: 20220805
  29. PREDNISONE [Concomitant]
     Active Substance: PREDNISONE
     Dosage: 25 MG
     Route: 065
     Dates: start: 20171117, end: 20171229
  30. PREDNISONE [Concomitant]
     Active Substance: PREDNISONE
     Dosage: 25 MG, ONGOING = NOT CHECKED
     Route: 065
     Dates: start: 20171230, end: 20180503
  31. DEXAMETHASONE [Concomitant]
     Active Substance: DEXAMETHASONE
     Dosage: UNK
     Route: 065
     Dates: start: 20171118, end: 20180414
  32. ALPRAZOLAM [Concomitant]
     Active Substance: ALPRAZOLAM
     Dosage: UNK, ONGOING = CHECKED
     Route: 065
     Dates: start: 20180803
  33. DEXAMETHASONE SODIUM PHOSPHATE [Concomitant]
     Active Substance: DEXAMETHASONE SODIUM PHOSPHATE
     Dosage: UNK, ONGOING=CHECKED
     Route: 065
     Dates: start: 20220922
  34. ONDANSETRON [Concomitant]
     Active Substance: ONDANSETRON
     Dosage: UNK, ONGOING=NOT CHECKED
     Route: 065
     Dates: start: 20210514, end: 20220729

REACTIONS (2)
  - Pneumonitis [Recovered/Resolved]
  - Diarrhoea [Recovered/Resolved]

NARRATIVE: CASE EVENT DATE: 20220819
